FAERS Safety Report 8372432-0 (Version None)
Quarter: 2012Q2

REPORT INFORMATION
  Report Type: 
  Country: None (occurrence: None)
  Receive Date: 20120521
  Receipt Date: 20120514
  Transmission Date: 20120825
  Serious: Yes (Congenital Anomaly, Other)
  Sender: FDA-Public Use
  Company Number: US-TEVA-2010001802

PATIENT
  Sex: Male
  Weight: 4.032 kg

DRUGS (4)
  1. PROVIGIL [Suspect]
     Route: 064
  2. SYNTHROID [Concomitant]
     Dosage: 100 MILLIGRAM;
  3. METFORMIN HCL [Concomitant]
     Dosage: 1000 MILLIGRAM;
  4. VALTREX [Concomitant]
     Dosage: 1000 MILLIGRAM;

REACTIONS (3)
  - HYPOSPADIAS [None]
  - CRYPTORCHISM [None]
  - INGUINAL HERNIA [None]
